FAERS Safety Report 8927631 (Version 2)
Quarter: 2012Q4

REPORT INFORMATION
  Report Type: 
  Country: US (occurrence: US)
  Receive Date: 20121127
  Receipt Date: 20121217
  Transmission Date: 20130627
  Serious: Yes (Death)
  Sender: FDA-Public Use
  Company Number: US-ASTELLAS-2012US011428

PATIENT
  Sex: Male

DRUGS (1)
  1. PROGRAF [Suspect]
     Indication: STEM CELL TRANSPLANT
     Dosage: 1.5 mg, bid
     Route: 048
     Dates: start: 20111201, end: 20121120

REACTIONS (2)
  - Off label use [Unknown]
  - Acute lymphocytic leukaemia [Fatal]
